FAERS Safety Report 18131605 (Version 1)
Quarter: 2020Q3

REPORT INFORMATION
  Report Type: Spontaneous
  Country: ID (occurrence: ID)
  Receive Date: 20200810
  Receipt Date: 20200810
  Transmission Date: 20201103
  Serious: Yes (Other)
  Sender: FDA-Public Use
  Company Number: ID-ROCHE-2650970

PATIENT
  Sex: Female

DRUGS (1)
  1. AVASTIN [Suspect]
     Active Substance: BEVACIZUMAB
     Indication: LUNG ADENOCARCINOMA
     Dosage: PATIENT RECEIVED 4 VIALS OF AVASTIN AND WAS GIVEN FOR A PERIOD OF 2 CYCLES
     Route: 065

REACTIONS (2)
  - Pleural effusion [Unknown]
  - Gingival bleeding [Unknown]
